FAERS Safety Report 7893735-X (Version None)
Quarter: 2011Q4

REPORT INFORMATION
  Report Type: 
  Country: None (occurrence: None)
  Receive Date: 20111104
  Receipt Date: 20111025
  Transmission Date: 20120403
  Serious: Yes (Other)
  Sender: FDA-Public Use
  Company Number: PHHY2011CH94298

PATIENT
  Age: 68 Year
  Sex: Male

DRUGS (2)
  1. LAMOTRIGINE [Suspect]
     Dosage: 100 MG, UNK
  2. LAMOTRIGINE [Suspect]
     Dosage: 25 MG, PER DAY

REACTIONS (7)
  - CONCOMITANT DISEASE AGGRAVATED [None]
  - AURA [None]
  - RAPID EYE MOVEMENTS SLEEP ABNORMAL [None]
  - AGGRESSION [None]
  - DRUG INEFFECTIVE [None]
  - SLEEP DISORDER [None]
  - ABNORMAL DREAMS [None]
